FAERS Safety Report 16651415 (Version 1)
Quarter: 2019Q3

REPORT INFORMATION
  Report Type: Spontaneous
  Country: US (occurrence: US)
  Receive Date: 20190617
  Receipt Date: 20190617
  Transmission Date: 20191004
  Serious: No
  Sender: FDA-Public Use
  Company Number: None

PATIENT
  Age: 3 Year
  Sex: Male

DRUGS (1)
  1. AMBRISENTAN 5MG TAB (X30) [Suspect]
     Active Substance: AMBRISENTAN
     Route: 048
     Dates: start: 201902

REACTIONS (1)
  - Off label use [None]

NARRATIVE: CASE EVENT DATE: 20190617
